FAERS Safety Report 7962208-8 (Version None)
Quarter: 2011Q4

REPORT INFORMATION
  Report Type: 
  Country: None (occurrence: None)
  Receive Date: 20111121
  Receipt Date: 20110913
  Transmission Date: 20120403
  Serious: No
  Sender: FDA-Public Use
  Company Number: 1000023867

PATIENT
  Age: 75 Year
  Sex: Female

DRUGS (11)
  1. CRESTOR [Concomitant]
  2. HYDROCHLOROTHIAZIDE [Concomitant]
  3. BENICAR [Concomitant]
  4. VIIBRYD [Suspect]
     Indication: DEPRESSION
     Dosage: 10 MG (10 MG, 1 IN 1 D), ORAL
     Route: 048
     Dates: start: 20110909
  5. ENALAPRIL MALEATE [Concomitant]
  6. LEXAPRO [Suspect]
     Indication: DEPRESSION
     Dosage: 20 MG, (20 MG, 1 IN 1 D), ORAL
     Route: 048
     Dates: start: 20030101, end: 20110908
  7. AMBIEN [Suspect]
     Indication: INSOMNIA
     Dates: end: 20110908
  8. GABAPENTIN [Concomitant]
  9. LORAZEPAM [Concomitant]
  10. ACETAMINOPHEN [Concomitant]
  11. METFORMIN HCL [Concomitant]

REACTIONS (4)
  - DIARRHOEA [None]
  - AGITATION [None]
  - ABDOMINAL DISTENSION [None]
  - ABDOMINAL PAIN [None]
